FAERS Safety Report 5854731-7 (Version None)
Quarter: 2008Q3

REPORT INFORMATION
  Report Type: 
  Country: None (occurrence: None)
  Receive Date: 20080822
  Receipt Date: 20071002
  Transmission Date: 20090109
  Serious: No
  Sender: FDA-Public Use
  Company Number: US-ABBOTT-07P-163-0419719-00

PATIENT
  Sex: Male
  Weight: 71.278 kg

DRUGS (2)
  1. SYNTHROID [Suspect]
     Indication: BLOOD THYROID STIMULATING HORMONE INCREASED
     Route: 048
     Dates: start: 20070828
  2. ALLOPURINOL [Concomitant]
     Indication: GOUT
     Dates: start: 20070929

REACTIONS (3)
  - ACTIVITIES OF DAILY LIVING IMPAIRED [None]
  - ARTHRALGIA [None]
  - PAIN IN EXTREMITY [None]
